FAERS Safety Report 6869224-8 (Version None)
Quarter: 2010Q3

REPORT INFORMATION
  Report Type: 
  Country: None (occurrence: None)
  Receive Date: 20100722
  Receipt Date: 20080728
  Transmission Date: 20110219
  Serious: Yes (Other)
  Sender: FDA-Public Use
  Company Number: US-PFIZER INC-2008054610

PATIENT
  Sex: Female
  Weight: 59 kg

DRUGS (3)
  1. CHANTIX [Suspect]
     Route: 048
     Dates: start: 20080601, end: 20080601
  2. ANTIHYPERTENSIVES [Concomitant]
     Route: 048
  3. LEXAPRO [Concomitant]

REACTIONS (7)
  - ABNORMAL DREAMS [None]
  - ADVERSE DRUG REACTION [None]
  - CONSTIPATION [None]
  - IRRITABILITY [None]
  - MOOD ALTERED [None]
  - SLEEP DISORDER [None]
  - SUICIDAL IDEATION [None]
